FAERS Safety Report 22665073 (Version 2)
Quarter: 2024Q4

REPORT INFORMATION
  Report Type: Spontaneous
  Country: US (occurrence: US)
  Receive Date: 20230703
  Receipt Date: 20241209
  Transmission Date: 20250114
  Serious: Yes (Hospitalization)
  Sender: RANBAXY
  Company Number: US-SUN PHARMACEUTICAL INDUSTRIES LTD-2023R1-393308

PATIENT
  Age: 52 Year
  Sex: Male

DRUGS (6)
  1. CLONAZEPAM [Suspect]
     Active Substance: CLONAZEPAM
     Indication: Insomnia
     Dosage: 1 MILLIGRAM, QD
     Route: 065
  2. LITHIUM [Suspect]
     Active Substance: LITHIUM
     Indication: Insomnia
     Dosage: 600 MILLIGRAM, BID
     Route: 065
  3. LITHIUM [Suspect]
     Active Substance: LITHIUM
     Indication: Mania
  4. OLANZAPINE [Suspect]
     Active Substance: OLANZAPINE
     Indication: Generalised anxiety disorder
     Dosage: 40 MILLIGRAM
     Route: 065
  5. PRUCALOPRIDE [Suspect]
     Active Substance: PRUCALOPRIDE
     Indication: Irritable bowel syndrome
     Dosage: 2 MILLIGRAM
     Route: 065
  6. PRUCALOPRIDE [Suspect]
     Active Substance: PRUCALOPRIDE
     Indication: Constipation

REACTIONS (1)
  - Drug ineffective [Unknown]
